FAERS Safety Report 11055243 (Version 1)
Quarter: 2015Q2

REPORT INFORMATION
  Report Type: Spontaneous
  Country: US (occurrence: None)
  Receive Date: 20150421
  Receipt Date: 20150421
  Transmission Date: 20150821
  Serious: Yes (Life-Threatening, Hospitalization)
  Sender: FDA-Public Use
  Company Number: None

PATIENT
  Age: 56 Year
  Sex: Male
  Weight: 88.91 kg

DRUGS (7)
  1. KEPPRA [Concomitant]
     Active Substance: LEVETIRACETAM
  2. PROTONIX [Concomitant]
     Active Substance: PANTOPRAZOLE SODIUM
  3. HUMALOG [Concomitant]
     Active Substance: INSULIN LISPRO
  4. ASPIRIN. [Concomitant]
     Active Substance: ASPIRIN
  5. ATIVAN [Suspect]
     Active Substance: LORAZEPAM
  6. LANTUS [Concomitant]
     Active Substance: INSULIN GLARGINE
  7. B6 [Concomitant]
     Active Substance: PYRIDOXINE HYDROCHLORIDE

REACTIONS (7)
  - Oesophageal perforation [None]
  - Device malfunction [None]
  - Hallucination [None]
  - Unevaluable event [None]
  - Refusal of treatment by patient [None]
  - Haematemesis [None]
  - Cardiac pacemaker insertion [None]

NARRATIVE: CASE EVENT DATE: 20150219
